FAERS Safety Report 16436333 (Version 2)
Quarter: 2019Q2

REPORT INFORMATION
  Report Type: Spontaneous
  Country: US (occurrence: US)
  Receive Date: 20190614
  Receipt Date: 20190621
  Transmission Date: 20190711
  Serious: No
  Sender: FDA-Public Use
  Company Number: US-JNJFOC-20190617107

PATIENT
  Sex: Female
  Weight: 66.74 kg

DRUGS (1)
  1. MINOXIDIL. [Suspect]
     Active Substance: MINOXIDIL
     Indication: ALOPECIA
     Dosage: HALF A CAPFUL EVERY DAY OR EVERY OTHER DAY.
     Route: 061
     Dates: start: 20190423

REACTIONS (2)
  - Product formulation issue [Unknown]
  - Inappropriate schedule of product administration [Unknown]
